FAERS Safety Report 9428296 (Version 1)
Quarter: 2013Q3

REPORT INFORMATION
  Report Type: Report from Study
  Country: US (occurrence: US)
  Receive Date: 20130730
  Receipt Date: 20130730
  Transmission Date: 20140515
  Serious: Yes (Other)
  Sender: FDA-Public Use
  Company Number: US-JNJFOC-20130714021

PATIENT
  Sex: Female

DRUGS (5)
  1. INVOKANA [Suspect]
     Indication: DIABETES MELLITUS
     Route: 048
     Dates: start: 20130718, end: 201307
  2. INVOKANA [Suspect]
     Indication: DIABETES MELLITUS
     Route: 048
     Dates: start: 201307, end: 201307
  3. METFORMIN [Concomitant]
     Indication: DIABETES MELLITUS
  4. CRESTOR [Concomitant]
     Indication: DIABETES MELLITUS
  5. BYDUREON [Concomitant]
     Indication: DIABETES MELLITUS

REACTIONS (8)
  - Dysstasia [Unknown]
  - Fall [Unknown]
  - Wrong technique in drug usage process [Recovered/Resolved]
  - Dizziness [Unknown]
  - Tremor [Unknown]
  - Headache [Unknown]
  - Incorrect dose administered [Recovered/Resolved]
  - Off label use [Unknown]
